FAERS Safety Report 5815748-1 (Version None)
Quarter: 2008Q3

REPORT INFORMATION
  Report Type: 
  Country: None (occurrence: None)
  Receive Date: 20080721
  Receipt Date: 20080709
  Transmission Date: 20090109
  Serious: Yes (Death)
  Sender: FDA-Public Use
  Company Number: JP-SANOFI-SYNTHELABO-A01200805338

PATIENT
  Age: 47 Year
  Sex: Female

DRUGS (4)
  1. NEUPOGEN [Concomitant]
     Indication: LEUKOPENIA
     Dosage: UNK
     Route: 058
     Dates: start: 20070101, end: 20070301
  2. FLUOROURACIL [Concomitant]
     Indication: RECTAL CANCER
     Dosage: IV BOLUS THEN CONTINUOUS DRIP UNK
     Route: 042
     Dates: start: 20070301, end: 20070301
  3. ELPLAT [Suspect]
     Indication: RECTAL CANCER
     Route: 041
     Dates: start: 20070301, end: 20070301
  4. ISOVORIN [Concomitant]
     Indication: RECTAL CANCER
     Route: 041
     Dates: start: 20070301, end: 20070301

REACTIONS (1)
  - ACUTE MYELOID LEUKAEMIA [None]
